FAERS Safety Report 23277943 (Version 1)
Quarter: 2023Q4

REPORT INFORMATION
  Report Type: Spontaneous
  Country: US (occurrence: None)
  Receive Date: 20231207
  Receipt Date: 20231207
  Transmission Date: 20240110
  Serious: Yes (Disabling)
  Sender: FDA-Public Use
  Company Number: None

PATIENT
  Age: 48 Year
  Sex: Female
  Weight: 45 kg

DRUGS (5)
  1. LEVOFLOXACIN [Suspect]
     Active Substance: LEVOFLOXACIN
     Indication: Infected bite
     Dosage: OTHER QUANTITY : 1 TABLET(S);?FREQUENCY : DAILY;?
     Route: 048
  2. TESTOSTERONE [Concomitant]
     Active Substance: TESTOSTERONE
  3. ESTRADIOL [Concomitant]
     Active Substance: ESTRADIOL
  4. Bi-est (estrogen) [Concomitant]
  5. PROGESTERONE [Concomitant]
     Active Substance: PROGESTERONE

REACTIONS (22)
  - Hormone level abnormal [None]
  - Thyroid disorder [None]
  - Blood oestrogen decreased [None]
  - Blood testosterone decreased [None]
  - Pain in extremity [None]
  - Premature menopause [None]
  - Gait disturbance [None]
  - Collagen disorder [None]
  - Tinnitus [None]
  - Dry eye [None]
  - Neuropathy vitamin B6 deficiency [None]
  - Neuralgia [None]
  - Paraesthesia [None]
  - Hypoaesthesia [None]
  - Muscle twitching [None]
  - Asthenia [None]
  - Functional gastrointestinal disorder [None]
  - Liver disorder [None]
  - Anxiety [None]
  - Panic attack [None]
  - Insomnia [None]
  - Fatigue [None]

NARRATIVE: CASE EVENT DATE: 20131127
